FAERS Safety Report 23649641 (Version 3)
Quarter: 2024Q2

REPORT INFORMATION
  Report Type: Spontaneous
  Country: CA (occurrence: CA)
  Receive Date: 20240319
  Receipt Date: 20240402
  Transmission Date: 20240716
  Serious: Yes (Other)
  Sender: FDA-Public Use
  Company Number: CA-PFIZER INC-202400028604

PATIENT
  Age: 31 Year
  Sex: Female

DRUGS (13)
  1. RUXIENCE [Suspect]
     Active Substance: RITUXIMAB-PVVR
     Indication: Multiple sclerosis
     Dosage: 1000 MG, DAY 1 AND DAY 15 (1000 MG, DAY 1 OF TREATMENT (FIRST TREATMENT))
     Route: 042
     Dates: start: 20240314
  2. RUXIENCE [Suspect]
     Active Substance: RITUXIMAB-PVVR
     Dosage: 1000 MG, DAY 1 AND DAY 15 (1000 MG))
     Route: 042
     Dates: start: 20240327
  3. ACETAMINOPHEN [Concomitant]
     Active Substance: ACETAMINOPHEN
     Indication: Premedication
     Dosage: UNK
     Dates: start: 20240314, end: 20240314
  4. ATIVAN [Concomitant]
     Active Substance: LORAZEPAM
     Indication: Anxiety
     Dosage: 0.5 MG (1 DF)
  5. ATIVAN [Concomitant]
     Active Substance: LORAZEPAM
     Dosage: 2 MG
     Dates: start: 20240314
  6. VITAMIN B12 [Concomitant]
     Active Substance: CYANOCOBALAMIN
     Dosage: 1 DF
  7. VITAMIN D3 [Concomitant]
     Active Substance: CHOLECALCIFEROL
     Dosage: 300 MG
  8. DIPHENHYDRAMINE [Concomitant]
     Active Substance: DIPHENHYDRAMINE
     Indication: Premedication
     Dosage: UNK
     Dates: start: 20240314, end: 20240314
  9. CEFIXIME [Concomitant]
     Active Substance: CEFIXIME
     Dosage: 10 MG
  10. FLOVENT [Concomitant]
     Active Substance: FLUTICASONE PROPIONATE
     Dosage: 1 DF
  11. METHYLPREDNISOLONE [Concomitant]
     Active Substance: METHYLPREDNISOLONE
     Indication: Premedication
     Dosage: UNK
     Dates: start: 20240314, end: 20240314
  12. NAPROXEN [Concomitant]
     Active Substance: NAPROXEN
     Dosage: 500 MG
  13. VENTOLIN [Concomitant]
     Active Substance: ALBUTEROL SULFATE
     Dosage: 1 DF

REACTIONS (11)
  - Heart rate increased [Recovering/Resolving]
  - Flushing [Recovering/Resolving]
  - Erythema [Recovering/Resolving]
  - Ear pruritus [Recovering/Resolving]
  - Pruritus [Recovered/Resolved]
  - Urticaria [Recovering/Resolving]
  - Brain fog [Recovered/Resolved]
  - Headache [Recovered/Resolved]
  - Migraine [Unknown]
  - Chest discomfort [Recovered/Resolved]
  - Off label use [Unknown]

NARRATIVE: CASE EVENT DATE: 20240301
